FAERS Safety Report 6295332-9 (Version None)
Quarter: 2009Q3

REPORT INFORMATION
  Report Type: 
  Country: None (occurrence: None)
  Receive Date: 20090803
  Receipt Date: 20090720
  Transmission Date: 20100115
  Serious: Yes (Hospitalization, Other)
  Sender: FDA-Public Use
  Company Number: JP-MYLANLABS-2009S1012785

PATIENT
  Age: 19 Year
  Sex: Female

DRUGS (3)
  1. PHENYTOIN [Suspect]
     Dosage: 170MG/DAY ON 22 JUN, 85 MG/DAY ON 23 JUN, NONE ON 24-28 JUN
     Route: 048
  2. PHENOBARBITAL [Concomitant]
     Route: 048
  3. NITRAZEPAM [Concomitant]
     Route: 048

REACTIONS (2)
  - DRUG TOXICITY [None]
  - STATUS EPILEPTICUS [None]
